FAERS Safety Report 6582750-4 (Version None)
Quarter: 2010Q1

REPORT INFORMATION
  Report Type: 
  Country: None (occurrence: None)
  Receive Date: 20100216
  Receipt Date: 20100204
  Transmission Date: 20100710
  Serious: Yes (Hospitalization)
  Sender: FDA-Public Use
  Company Number: FR-PFIZER INC-2010015208

PATIENT
  Age: 63 Year
  Sex: Male
  Weight: 83 kg

DRUGS (16)
  1. BLINDED *NO SUBJECT DRUG [Suspect]
     Indication: PROSTATE CANCER
     Dosage: 37.5 MG, 1X/DAY
     Route: 048
     Dates: start: 20091102
  2. BLINDED *PLACEBO [Suspect]
     Indication: PROSTATE CANCER
     Dosage: 37.5 MG, 1X/DAY
     Route: 048
     Dates: start: 20091102
  3. BLINDED SUNITINIB MALATE [Suspect]
     Indication: PROSTATE CANCER
     Dosage: 37.5 MG, 1X/DAY
     Route: 048
     Dates: start: 20091102
  4. PREDNISONE [Suspect]
     Indication: PROSTATE CANCER
     Dosage: 5 MG, 2X/DAY
     Route: 048
     Dates: start: 20091102
  5. TRIPTORELIN [Concomitant]
     Indication: PROSTATE CANCER
     Dosage: UNK
     Route: 058
     Dates: start: 20081114
  6. ZOLEDRONIC ACID [Concomitant]
     Indication: PROSTATE CANCER
     Dosage: UNK
     Route: 042
     Dates: start: 20090417
  7. MORPHINE [Concomitant]
     Indication: PAIN
     Dosage: UNK
     Route: 048
     Dates: start: 20091013
  8. KETOPROFEN [Concomitant]
     Indication: PAIN
     Dosage: 150 MG, 2X/DAY
     Route: 048
     Dates: start: 20091013
  9. ESOMEPRAZOLE [Concomitant]
     Indication: ABDOMINAL PAIN LOWER
     Dosage: 20 MG, 1X/DAY
     Route: 048
     Dates: start: 20091013
  10. MACROGOL [Concomitant]
     Indication: CONSTIPATION PROPHYLAXIS
     Dosage: UNK
     Route: 048
     Dates: start: 20091013
  11. BROMELAINS [Concomitant]
     Indication: OEDEMA PERIPHERAL
     Dosage: UNK
     Route: 048
     Dates: start: 20090901
  12. CACIT D3 [Concomitant]
     Indication: HYPOCALCAEMIA
     Dosage: UNK
     Route: 048
     Dates: start: 20090313
  13. BUFLOMEDIL [Concomitant]
     Indication: ARTERIAL DISORDER
     Dosage: 300 MG, 2X/DAY
     Route: 048
     Dates: start: 19990101
  14. BETAMETHASONE [Concomitant]
     Indication: PROCTITIS HAEMORRHAGIC
     Dosage: 0.5 MG, 3X/DAY
     Route: 048
     Dates: start: 20091013
  15. PARACETAMOL [Concomitant]
     Indication: PAIN
     Dosage: UNK
     Route: 048
     Dates: start: 20091013
  16. METOCLOPRAMIDE [Concomitant]
     Indication: NAUSEA
     Dosage: 10 MG, 3X/DAY
     Route: 048
     Dates: start: 20091130

REACTIONS (1)
  - HAEMATURIA [None]
